FAERS Safety Report 13480419 (Version 2)
Quarter: 2017Q2

REPORT INFORMATION
  Report Type: Report from Study
  Country: US (occurrence: US)
  Receive Date: 20170425
  Receipt Date: 20170515
  Transmission Date: 20170830
  Serious: Yes (Other)
  Sender: FDA-Public Use
  Company Number: US-GILEAD-2017-0269076

PATIENT
  Age: 80 Year
  Sex: Female

DRUGS (3)
  1. IDELALISIB [Suspect]
     Active Substance: IDELALISIB
     Indication: CHRONIC LYMPHOCYTIC LEUKAEMIA
     Dosage: 150 MG, BID
     Route: 048
     Dates: start: 20160919, end: 20170417
  2. TYLENOL [Suspect]
     Active Substance: ACETAMINOPHEN
     Indication: BODY TEMPERATURE
     Dosage: 500MG, UNK
     Route: 065
     Dates: start: 20170417
  3. TYLENOL [Suspect]
     Active Substance: ACETAMINOPHEN
     Dosage: 1000 MG, UNK
     Route: 065
     Dates: end: 20170417

REACTIONS (6)
  - Malaise [Recovering/Resolving]
  - Dehydration [Unknown]
  - Urinary retention [Recovering/Resolving]
  - Asthenia [Not Recovered/Not Resolved]
  - Body temperature abnormal [Not Recovered/Not Resolved]
  - Fatigue [Not Recovered/Not Resolved]

NARRATIVE: CASE EVENT DATE: 2017
